FAERS Safety Report 18511816 (Version 1)
Quarter: 2020Q4

REPORT INFORMATION
  Report Type: Spontaneous
  Country: DE (occurrence: DE)
  Receive Date: 20201117
  Receipt Date: 20201117
  Transmission Date: 20210114
  Serious: Yes (Hospitalization)
  Sender: FDA-Public Use
  Company Number: DE-MYLANLABS-2020M1095281

PATIENT
  Age: 17 Year
  Sex: Male

DRUGS (4)
  1. GRANISETRON [Suspect]
     Active Substance: GRANISETRON
     Indication: VOMITING
     Dosage: 1MG UP TO 2 X DAILY
     Route: 042
  2. OMEPRAZOLE. [Suspect]
     Active Substance: OMEPRAZOLE
     Indication: VOMITING
     Dosage: 40 MILLIGRAM, QD
     Route: 042
  3. DIMENHYDRINATE. [Suspect]
     Active Substance: DIMENHYDRINATE
     Indication: VOMITING
     Dosage: 62 MILLIGRAM AS REQUIRED
     Route: 042
  4. RANITIDINE. [Suspect]
     Active Substance: RANITIDINE
     Indication: SYMPTOMATIC TREATMENT
     Dosage: 75 MILLIGRAM, BID 75 MG UP TO 2 X DAILY
     Route: 042

REACTIONS (1)
  - Drug ineffective [Unknown]
